FAERS Safety Report 6988093-9 (Version None)
Quarter: 2010Q3

REPORT INFORMATION
  Report Type: 
  Country: None (occurrence: None)
  Receive Date: 20100916
  Receipt Date: 20100908
  Transmission Date: 20110219
  Serious: Yes (Hospitalization, Disabling)
  Sender: FDA-Public Use
  Company Number: A0881316A

PATIENT
  Age: 60 Year
  Sex: Female

DRUGS (1)
  1. AVANDIA [Suspect]
     Dosage: 8MG PER DAY
     Route: 048
     Dates: start: 20030410, end: 20051001

REACTIONS (5)
  - ARTERIOSCLEROSIS CORONARY ARTERY [None]
  - DECREASED ACTIVITY [None]
  - DYSPNOEA [None]
  - HYPERLIPIDAEMIA [None]
  - PAIN [None]
